FAERS Safety Report 10013483 (Version 3)
Quarter: 2014Q3

REPORT INFORMATION
  Report Type: Spontaneous
  Country: US (occurrence: US)
  Receive Date: 20140314
  Receipt Date: 20140811
  Transmission Date: 20150326
  Serious: Yes (Other)
  Sender: FDA-Public Use
  Company Number: US-009507513-1403USA006087

PATIENT
  Sex: Female
  Weight: 3.22 kg

DRUGS (8)
  1. ISENTRESS [Suspect]
     Active Substance: RALTEGRAVIR POTASSIUM
     Indication: HIV INFECTION
     Dosage: 800 MG, DAY
     Route: 064
     Dates: start: 20130613
  2. PREZISTA [Suspect]
     Active Substance: DARUNAVIR ETHANOLATE
     Indication: HIV INFECTION
     Dosage: 800 MG
     Route: 064
     Dates: start: 20130627, end: 20130901
  3. RETROVIR [Suspect]
     Active Substance: ZIDOVUDINE
     Indication: HIV INFECTION
     Dosage: 2 MG/KG/HR
     Route: 064
     Dates: start: 20131129, end: 20131129
  4. TRUVADA [Suspect]
     Active Substance: EMTRICITABINE\TENOFOVIR DISOPROXIL FUMARATE
     Indication: HIV INFECTION
     Dosage: 1 DF, UNK
     Route: 064
     Dates: start: 20130613
  5. NORVIR [Suspect]
     Active Substance: RITONAVIR
     Indication: HIV INFECTION
     Dosage: 100 MG, DAY
     Route: 064
     Dates: start: 20130627
  6. NORVIR [Suspect]
     Active Substance: RITONAVIR
     Dosage: 200 MG, DAY
     Route: 064
     Dates: start: 20130901
  7. RETROVIR [Suspect]
     Active Substance: ZIDOVUDINE
     Dosage: 1 MG/KG/HR
     Route: 064
     Dates: start: 20131129, end: 20131129
  8. PREZISTA [Suspect]
     Active Substance: DARUNAVIR ETHANOLATE
     Dosage: 1200 MG, DAY
     Route: 064
     Dates: start: 20130901

REACTIONS (3)
  - Infarction [Unknown]
  - Meningitis streptococcal [Unknown]
  - Foetal exposure during pregnancy [Recovered/Resolved]

NARRATIVE: CASE EVENT DATE: 2013
